FAERS Safety Report 7736287-7 (Version None)
Quarter: 2011Q3

REPORT INFORMATION
  Report Type: 
  Country: None (occurrence: None)
  Receive Date: 20110902
  Receipt Date: 20110818
  Transmission Date: 20111222
  Serious: Yes (Hospitalization)
  Sender: FDA-Public Use
  Company Number: BR-001843

PATIENT
  Sex: Female
  Weight: 21.5 kg

DRUGS (3)
  1. NAGLAZYME [Suspect]
     Indication: MUCOPOLYSACCHARIDOSIS VI
     Dosage: (20 MG 1X/WEEK INTRAVENOUS DRIP)
     Route: 041
     Dates: start: 20100519
  2. POLARAMINE [Concomitant]
  3. IBUPROFEN [Concomitant]

REACTIONS (4)
  - TACHYCARDIA [None]
  - PNEUMONIA [None]
  - FATIGUE [None]
  - REFUSAL OF TREATMENT BY RELATIVE [None]
